FAERS Safety Report 18585839 (Version 2)
Quarter: 2020Q4

REPORT INFORMATION
  Report Type: Spontaneous
  Country: MA (occurrence: MA)
  Receive Date: 20201207
  Receipt Date: 20201228
  Transmission Date: 20210114
  Serious: Yes (Other)
  Sender: FDA-Public Use
  Company Number: NVSC2020MA320996

PATIENT
  Age: 62 Year
  Sex: Female

DRUGS (1)
  1. KISQALI [Suspect]
     Active Substance: RIBOCICLIB
     Indication: BREAST CANCER
     Dosage: 250 MG
     Route: 048
     Dates: start: 202010

REACTIONS (4)
  - Asthenia [Unknown]
  - Immunodeficiency [Unknown]
  - Fatigue [Unknown]
  - Decreased appetite [Unknown]
